FAERS Safety Report 9760572 (Version 1)
Quarter: 2013Q4

REPORT INFORMATION
  Report Type: Spontaneous
  Country: US (occurrence: US)
  Receive Date: 20131216
  Receipt Date: 20131216
  Transmission Date: 20140711
  Serious: No
  Sender: FDA-Public Use
  Company Number: US-BIOGENIDEC-2013BI102049

PATIENT
  Age: 48 Year
  Sex: Female

DRUGS (6)
  1. TECFIDERA [Suspect]
     Indication: MULTIPLE SCLEROSIS
     Route: 048
     Dates: start: 20130920, end: 20131022
  2. GABAPENTIN [Concomitant]
  3. NITROFURANTOIN [Concomitant]
  4. DIAZEPAM [Concomitant]
  5. BACLOFEN [Concomitant]
  6. TIZANIDINE [Concomitant]

REACTIONS (4)
  - Decreased appetite [Unknown]
  - Nausea [Unknown]
  - Vomiting [Recovered/Resolved]
  - Abdominal pain [Recovered/Resolved]
